FAERS Safety Report 6855668 (Version 1)
Quarter: 2020Q3

REPORT INFORMATION
  Report Type: Report from Study
  Country: US (occurrence: US)
  Receive Date: 20081217
  Receipt Date: 20081217
  Transmission Date: 20201104
  Serious: Yes (Death, Hospitalization, Other)
  Sender: FDA-Public Use
  Company Number: US-ROCHE-601743

PATIENT
  Age: 60 Year
  Sex: Female

DRUGS (1)
  1. IBANDRONIC ACID. [Suspect]
     Active Substance: IBANDRONIC ACID
     Indication: OSTEOPENIA
     Route: 048
     Dates: start: 200604, end: 200810

REACTIONS (5)
  - Respiratory arrest [Unknown]
  - Breast cancer metastatic [Fatal]
  - Respiratory failure [Fatal]
  - Metastasis [Unknown]
  - Dyspnoea [Unknown]

NARRATIVE: CASE EVENT DATE: 20080101
